FAERS Safety Report 6273406-6 (Version None)
Quarter: 2009Q3

REPORT INFORMATION
  Report Type: 
  Country: None (occurrence: None)
  Receive Date: 20090720
  Receipt Date: 20090707
  Transmission Date: 20100115
  Serious: Yes (Other)
  Sender: FDA-Public Use
  Company Number: PHHY2009JP27963

PATIENT
  Sex: Female

DRUGS (3)
  1. ZOLEDRONIC ACID [Suspect]
     Indication: METASTASES TO BONE
     Dosage: 4 MG EVERY 4 WEEKS
     Route: 042
     Dates: start: 20071109, end: 20080229
  2. ARIMIDEX [Concomitant]
     Indication: BREAST CANCER
     Dosage: 1 MG, UNK
     Route: 048
     Dates: start: 20070522, end: 20081210
  3. CYANOCOBALAMIN [Concomitant]
     Dosage: 1.5 MG, UNK
     Route: 048
     Dates: start: 20070522, end: 20071120

REACTIONS (3)
  - HYPOCALCAEMIA [None]
  - OSTEOMYELITIS [None]
  - RENAL IMPAIRMENT [None]
